FAERS Safety Report 17480614 (Version 2)
Quarter: 2020Q2

REPORT INFORMATION
  Report Type: Report from Study
  Country: EC (occurrence: EC)
  Receive Date: 20200301
  Receipt Date: 20200401
  Transmission Date: 20200713
  Serious: Yes (Other)
  Sender: FDA-Public Use
  Company Number: NVSC2020EC001129

PATIENT
  Age: 51 Year
  Sex: Male
  Weight: 97 kg

DRUGS (2)
  1. SANDOSTATIN LAR DEPOT [Suspect]
     Active Substance: OCTREOTIDE ACETATE
     Indication: ACROMEGALY
     Dosage: 20 MG, QMO
     Route: 030
     Dates: start: 20160425, end: 20191216
  2. EUTIROX [Concomitant]
     Active Substance: LEVOTHYROXINE SODIUM
     Indication: THYROID DISORDER
     Dosage: 100 UG, QD
     Route: 065

REACTIONS (9)
  - Flatulence [Recovered/Resolved]
  - Cholelithiasis [Recovering/Resolving]
  - Liver disorder [Recovering/Resolving]
  - Back pain [Not Recovered/Not Resolved]
  - Muscle injury [Not Recovered/Not Resolved]
  - Large intestine polyp [Recovered/Resolved]
  - Brain neoplasm [Unknown]
  - Choking [Unknown]
  - Abdominal distension [Recovered/Resolved]

NARRATIVE: CASE EVENT DATE: 2016
